FAERS Safety Report 9221930 (Version 2)
Quarter: 2013Q2

REPORT INFORMATION
  Report Type: Spontaneous
  Country: US (occurrence: US)
  Receive Date: 20130410
  Receipt Date: 20130502
  Transmission Date: 20140414
  Serious: No
  Sender: FDA-Public Use
  Company Number: US-PFIZER INC-2013113013

PATIENT
  Age: 91 Year
  Sex: Female
  Weight: 61 kg

DRUGS (9)
  1. LYRICA [Suspect]
     Indication: NEUROPATHY PERIPHERAL
     Dosage: UNK
     Dates: start: 2009
  2. LYRICA [Suspect]
     Dosage: 150 MG, 3X/DAY
     Route: 048
     Dates: start: 20100315
  3. SIMVASTATIN [Concomitant]
     Indication: HYPERTENSION
     Dosage: UNK, 1X/DAY
  4. CALCIUM [Concomitant]
     Dosage: UNK
  5. AMITRIPTYLINE [Concomitant]
     Indication: NEUROPATHY PERIPHERAL
     Dosage: 3 DF, 1X/DAY
     Route: 048
  6. AMITRIPTYLINE [Concomitant]
     Dosage: 40 MG, 1X/DAY (QHS)
  7. THYROXINE [Concomitant]
     Indication: THYROID DISORDER
     Dosage: UNK, 1X/DAY
  8. COLACE [Concomitant]
     Dosage: UNK, 3X/DAY
  9. SYNTHROID [Concomitant]
     Dosage: 100 UG, 1X/DAY

REACTIONS (1)
  - Drug ineffective [Unknown]
